FAERS Safety Report 6862957-9 (Version None)
Quarter: 2010Q2

REPORT INFORMATION
  Report Type: 
  Country: None (occurrence: None)
  Receive Date: 20100528
  Receipt Date: 20100416
  Transmission Date: 20101027
  Serious: No
  Sender: FDA-Public Use
  Company Number: 010315

PATIENT
  Sex: Female

DRUGS (10)
  1. LACOSAMIDE [Suspect]
     Indication: CONVULSION
     Dosage: 150 MG BID
     Dates: start: 20100413
  2. LAMICTAL [Concomitant]
  3. NEURONTIN [Concomitant]
  4. KEPPRA [Concomitant]
  5. HYDROCORTISONE [Concomitant]
  6. LEVOTHYROXINE SODIUM [Concomitant]
  7. ATIVAN [Concomitant]
  8. AMBIEN [Concomitant]
  9. PRILOSEC [Concomitant]
  10. NEXIUM [Concomitant]

REACTIONS (2)
  - NAUSEA [None]
  - PRURITUS [None]
